FAERS Safety Report 11865204 (Version 1)
Quarter: 2015Q4

REPORT INFORMATION
  Report Type: Spontaneous
  Country: US (occurrence: US)
  Receive Date: 20151223
  Receipt Date: 20151223
  Transmission Date: 20160305
  Serious: Yes (Other)
  Sender: FDA-Public Use
  Company Number: US-ASTRAZENECA-2015SF28674

PATIENT
  Sex: Male
  Weight: 100.2 kg

DRUGS (3)
  1. LEVEMIR [Concomitant]
     Active Substance: INSULIN DETEMIR
  2. BYDUREON [Suspect]
     Active Substance: EXENATIDE
     Indication: DIABETES MELLITUS
     Dosage: ONCE A WEEK
     Route: 058
  3. BYDUREON [Suspect]
     Active Substance: EXENATIDE
     Indication: DIABETES MELLITUS
     Dosage: 2 ONCE A WEEK
     Route: 065

REACTIONS (6)
  - Injection site pain [Unknown]
  - Glycosylated haemoglobin increased [Unknown]
  - Blood triglycerides increased [Unknown]
  - Product quality issue [Unknown]
  - Low density lipoprotein increased [Unknown]
  - Blood glucose decreased [Recovered/Resolved]
